FAERS Safety Report 9413593 (Version 1)
Quarter: 2013Q3

REPORT INFORMATION
  Report Type: Spontaneous
  Country: FR (occurrence: FR)
  Receive Date: 20130722
  Receipt Date: 20130722
  Transmission Date: 20140515
  Serious: Yes (Death, Congenital Anomaly, Other)
  Sender: FDA-Public Use
  Company Number: FR-009507513-1307FRA007242

PATIENT
  Age: 0 Day
  Sex: Male
  Weight: .49 kg

DRUGS (4)
  1. NASONEX [Suspect]
     Route: 064
  2. MIZOLLEN [Suspect]
     Route: 064
  3. OPTICRON [Suspect]
     Route: 064
  4. VENTOLINE (ALBUTEROL) [Suspect]
     Route: 064

REACTIONS (2)
  - Limb reduction defect [Unknown]
  - Abortion induced [Fatal]
